FAERS Safety Report 16594972 (Version 1)
Quarter: 2019Q3

REPORT INFORMATION
  Report Type: Spontaneous
  Country: US (occurrence: US)
  Receive Date: 20190718
  Receipt Date: 20190718
  Transmission Date: 20191004
  Serious: No
  Sender: FDA-Public Use
  Company Number: US-ROCHE-2231119

PATIENT
  Sex: Male

DRUGS (2)
  1. HEMLIBRA [Suspect]
     Active Substance: EMICIZUMAB-KXWH
     Indication: HAEMOPHILIA
     Dosage: SECOND LOADING DOSE
     Route: 058
     Dates: start: 201811
  2. HEMLIBRA [Suspect]
     Active Substance: EMICIZUMAB-KXWH
     Indication: FACTOR VIII DEFICIENCY
     Dosage: FIRST LOADING DOSE, ONGOING: NO
     Route: 058
     Dates: start: 201811

REACTIONS (3)
  - Product storage error [Unknown]
  - Poor quality product administered [Unknown]
  - No adverse event [Unknown]
